FAERS Safety Report 9644483 (Version 2)
Quarter: 2013Q4

REPORT INFORMATION
  Report Type: Spontaneous
  Country: IE (occurrence: IE)
  Receive Date: 20131025
  Receipt Date: 20131121
  Transmission Date: 20140711
  Serious: No
  Sender: FDA-Public Use
  Company Number: IE-AMGEN-IRLSP2013074043

PATIENT
  Age: 65 Year
  Sex: Male

DRUGS (1)
  1. NEULASTA [Suspect]
     Indication: NEUROENDOCRINE TUMOUR
     Dosage: 6MG/0.6ML, POST CHEMO THREE WEEKLY
     Route: 058

REACTIONS (1)
  - Back pain [Recovered/Resolved]
